FAERS Safety Report 19819156 (Version 2)
Quarter: 2021Q4

REPORT INFORMATION
  Report Type: Report from Study
  Country: IT (occurrence: IT)
  Receive Date: 20210913
  Receipt Date: 20211001
  Transmission Date: 20220303
  Serious: Yes (Death, Other)
  Sender: FDA-Public Use
  Company Number: IT-BRISTOL-MYERS SQUIBB COMPANY-BMS-2021-089909

PATIENT
  Age: 51 Year

DRUGS (2)
  1. NIVOLUMAB [Suspect]
     Active Substance: NIVOLUMAB
     Indication: Metastatic malignant melanoma
     Dosage: 282 MILLIGRAM CYCLICAL
     Route: 042
     Dates: start: 20210709, end: 20210709
  2. YERVOY [Suspect]
     Active Substance: IPILIMUMAB
     Indication: Metastatic malignant melanoma
     Dosage: 94 MILLIGRAM CYCLICAL
     Route: 042
     Dates: start: 20210709, end: 20210709

REACTIONS (12)
  - Asthenia [Fatal]
  - Erythema [Fatal]
  - Stevens-Johnson syndrome [Fatal]
  - Oedema [Fatal]
  - Corynebacterium infection [Fatal]
  - Blood pH increased [Fatal]
  - Diarrhoea [Fatal]
  - Blood creatine increased [Fatal]
  - Renal failure [Fatal]
  - Cystitis [Fatal]
  - Conjunctivitis [Fatal]
  - Mucosal dryness [Fatal]

NARRATIVE: CASE EVENT DATE: 20210715
